FAERS Safety Report 18637101 (Version 1)
Quarter: 2020Q4

REPORT INFORMATION
  Report Type: Spontaneous
  Country: US (occurrence: US)
  Receive Date: 20201218
  Receipt Date: 20201218
  Transmission Date: 20210114
  Serious: No
  Sender: FDA-Public Use
  Company Number: US-REGENERON PHARMACEUTICALS, INC.-2020-47651

PATIENT

DRUGS (5)
  1. EYLEA [Suspect]
     Active Substance: AFLIBERCEPT
     Dosage: Q6W OR Q7W, RIGHT EYE
     Route: 031
  2. PRESERVISION AREDS 2 [Concomitant]
     Active Substance: MINERALS\VITAMINS
     Indication: PRODUCT USED FOR UNKNOWN INDICATION
     Dosage: TWICE A DAY
  3. EYLEA [Suspect]
     Active Substance: AFLIBERCEPT
     Indication: MACULAR DEGENERATION
     Dosage: MONTHLY, RIGHT EYE
     Route: 031
     Dates: start: 2016
  4. AVASTIN [Concomitant]
     Active Substance: BEVACIZUMAB
     Indication: MACULAR DEGENERATION
     Dosage: RIGHT EYE
     Route: 031
     Dates: start: 2016
  5. AVASTIN [Concomitant]
     Active Substance: BEVACIZUMAB
     Dosage: RIGHT EYE
     Route: 031
     Dates: start: 20200701, end: 20200701

REACTIONS (1)
  - Visual acuity reduced transiently [Recovered/Resolved]
